FAERS Safety Report 7407861-2 (Version None)
Quarter: 2011Q1

REPORT INFORMATION
  Report Type: 
  Country: None (occurrence: None)
  Receive Date: 20110331
  Receipt Date: 20110318
  Transmission Date: 20110831
  Serious: Yes (Hospitalization, Other)
  Sender: FDA-Public Use
  Company Number: 2011001275

PATIENT
  Age: 87 Year
  Sex: Female

DRUGS (1)
  1. TARCEVA [Suspect]
     Indication: LUNG NEOPLASM MALIGNANT
     Dosage: (150 MG,DAILY),ORAL
     Route: 048
     Dates: start: 20110126

REACTIONS (5)
  - SYNCOPE [None]
  - GASTROINTESTINAL HAEMORRHAGE [None]
  - INCONTINENCE [None]
  - DEEP VEIN THROMBOSIS [None]
  - HYPOTENSION [None]
